FAERS Safety Report 21678410 (Version 10)
Quarter: 2023Q4

REPORT INFORMATION
  Report Type: Report from Study
  Country: US (occurrence: US)
  Receive Date: 20221203
  Receipt Date: 20231005
  Transmission Date: 20240110
  Serious: No
  Sender: FDA-Public Use
  Company Number: US-002147023-NVSC2022US278488

PATIENT
  Sex: Female

DRUGS (1)
  1. KESIMPTA [Suspect]
     Active Substance: OFATUMUMAB
     Indication: Relapsing multiple sclerosis
     Dosage: UNK
     Route: 065
     Dates: start: 20221115

REACTIONS (7)
  - Arthralgia [Unknown]
  - Dysuria [Unknown]
  - Urine abnormality [Unknown]
  - Fatigue [Unknown]
  - Diarrhoea [Unknown]
  - Injection site pain [Recovered/Resolved]
  - Abdominal pain [Unknown]
